FAERS Safety Report 4546282-7 (Version None)
Quarter: 2005Q1

REPORT INFORMATION
  Report Type: 
  Country: None (occurrence: None)
  Receive Date: 20050106
  Receipt Date: 20041229
  Transmission Date: 20050727
  Serious: Yes (Hospitalization, Disabling)
  Sender: FDA-Public Use
  Company Number: 200422269GDDC

PATIENT
  Age: 38 Year
  Sex: Female

DRUGS (1)
  1. NICORETTE [Suspect]
     Indication: EX-SMOKER
     Route: 002
     Dates: start: 19960801, end: 20010401

REACTIONS (10)
  - ABNORMAL BEHAVIOUR [None]
  - ANORECTAL DISORDER [None]
  - ANXIETY [None]
  - BRAIN HYPOXIA [None]
  - FEELING ABNORMAL [None]
  - HEMIPLEGIA [None]
  - HYPOTONIA [None]
  - SOCIAL AVOIDANT BEHAVIOUR [None]
  - SPEECH DISORDER [None]
  - VISUAL DISTURBANCE [None]
